FAERS Safety Report 12672157 (Version 3)
Quarter: 2016Q3

REPORT INFORMATION
  Report Type: Spontaneous
  Country: US (occurrence: US)
  Receive Date: 20160822
  Receipt Date: 20160928
  Transmission Date: 20161109
  Serious: No
  Sender: FDA-Public Use
  Company Number: US-PFIZER INC-2016394516

PATIENT
  Age: 74 Year
  Sex: Female
  Weight: 64 kg

DRUGS (2)
  1. DEPO-ESTRADIOL [Suspect]
     Active Substance: ESTRADIOL CYPIONATE
     Dosage: 5MG/5ML BOTTLE, INJECT 1ML
     Route: 030
  2. ALPRAZOLAM. [Concomitant]
     Active Substance: ALPRAZOLAM
     Indication: SLEEP DISORDER
     Dosage: 4.5MG, ONE TABLET AT NIGHT

REACTIONS (9)
  - Dizziness [Recovered/Resolved]
  - Poor quality drug administered [Unknown]
  - Product quality issue [Unknown]
  - Abdominal discomfort [Recovered/Resolved]
  - Malaise [Unknown]
  - Dysgeusia [Recovered/Resolved]
  - Back pain [Recovered/Resolved]
  - Sensation of foreign body [Recovered/Resolved]
  - Menopausal symptoms [Unknown]

NARRATIVE: CASE EVENT DATE: 20160816
